FAERS Safety Report 6803425-X (Version None)
Quarter: 2010Q2

REPORT INFORMATION
  Report Type: 
  Country: None (occurrence: None)
  Receive Date: 20100628
  Receipt Date: 20100623
  Transmission Date: 20101027
  Serious: Yes (Life-Threatening)
  Sender: FDA-Public Use
  Company Number: US-PFIZER INC-2010078916

PATIENT
  Sex: Female
  Weight: 81 kg

DRUGS (6)
  1. EXEMESTANE [Suspect]
     Indication: BREAST CANCER
     Dosage: 25 MG, 1X/DAY
     Route: 048
     Dates: start: 20091221, end: 20100416
  2. TRICOR [Concomitant]
     Indication: HYPERLIPIDAEMIA
     Dosage: UNK
  3. LISINOPRIL [Concomitant]
     Indication: HYPERTENSION
     Dosage: UNK
  4. LEVOTHYROXINE [Concomitant]
     Indication: HYPOTHYROIDISM
     Dosage: UNK
  5. MULTI-VITAMINS [Concomitant]
     Dosage: UNK
  6. ESTRACE [Concomitant]
     Indication: VULVOVAGINAL DRYNESS
     Dosage: UNK

REACTIONS (2)
  - HYPERCALCAEMIA [None]
  - HYPERCREATININAEMIA [None]
